FAERS Safety Report 4840021-8 (Version None)
Quarter: 2005Q4

REPORT INFORMATION
  Report Type: 
  Country: None (occurrence: None)
  Receive Date: 20051125
  Receipt Date: 20041114
  Transmission Date: 20060501
  Serious: Yes (Death)
  Sender: FDA-Public Use
  Company Number: 05H-076-0303768-00

PATIENT
  Age: 66 Year
  Sex: Male

DRUGS (1)
  1. DOBUTAMINE HCL [Suspect]
     Indication: STRESS ECHOCARDIOGRAM

REACTIONS (2)
  - CARDIAC ANEURYSM [None]
  - MYOCARDIAL RUPTURE [None]
